FAERS Safety Report 5230241-5 (Version None)
Quarter: 2007Q1

REPORT INFORMATION
  Report Type: 
  Country: None (occurrence: None)
  Receive Date: 20070206
  Receipt Date: 20061018
  Transmission Date: 20070707
  Serious: No
  Sender: FDA-Public Use
  Company Number: US-GLAXOSMITHKLINE-A0624059A

PATIENT
  Age: 63 Year
  Sex: Female

DRUGS (1)
  1. PAXIL CR [Suspect]
     Indication: DEPRESSION
     Dosage: 12.5MG UNKNOWN
     Route: 048
     Dates: start: 20060101

REACTIONS (4)
  - FEELING ABNORMAL [None]
  - HEADACHE [None]
  - NAUSEA [None]
  - NERVOUSNESS [None]
